FAERS Safety Report 5772288-6 (Version None)
Quarter: 2008Q2

REPORT INFORMATION
  Report Type: 
  Country: None (occurrence: None)
  Receive Date: 20080613
  Receipt Date: 20080607
  Transmission Date: 20081010
  Serious: Yes (Other)
  Sender: FDA-Public Use
  Company Number: PHHY2008JP09549

PATIENT
  Sex: Male
  Weight: 65 kg

DRUGS (4)
  1. DIOVAN [Suspect]
     Indication: HYPERTENSION
     Dosage: 80 MG/DAY
     Route: 048
     Dates: start: 20080411, end: 20080515
  2. DIOVAN [Suspect]
     Dosage: 160 MG/DAY
     Route: 048
     Dates: start: 20080516
  3. LANDEL [Concomitant]
     Indication: HYPERTENSION
     Dosage: 20 MG, BID
     Dates: start: 20070904
  4. VOLTAREN [Concomitant]
     Indication: UPPER RESPIRATORY TRACT INFLAMMATION
     Dosage: UNK
     Dates: start: 20080523

REACTIONS (15)
  - ARTHRALGIA [None]
  - BILIARY TRACT INFECTION [None]
  - BLOOD ALKALINE PHOSPHATASE INCREASED [None]
  - BLOOD GLUCOSE INCREASED [None]
  - C-REACTIVE PROTEIN INCREASED [None]
  - GAMMA-GLUTAMYLTRANSFERASE INCREASED [None]
  - INFLAMMATION [None]
  - ITCHING SCAR [None]
  - LYMPHOCYTE COUNT DECREASED [None]
  - PHARYNGOLARYNGEAL DISCOMFORT [None]
  - PLATELET COUNT DECREASED [None]
  - PROTEIN URINE PRESENT [None]
  - PYREXIA [None]
  - RED BLOOD CELL COUNT DECREASED [None]
  - VIRAL INFECTION [None]
